FAERS Safety Report 13008233 (Version 2)
Quarter: 2017Q1

REPORT INFORMATION
  Report Type: Spontaneous
  Country: CA (occurrence: CA)
  Receive Date: 20161208
  Receipt Date: 20170105
  Transmission Date: 20170428
  Serious: Yes (Hospitalization, Other)
  Sender: FDA-Public Use
  Company Number: CA-APOTEX-2016AP007698

PATIENT
  Age: 45 Year

DRUGS (8)
  1. PHENYTOIN. [Concomitant]
     Active Substance: PHENYTOIN
     Indication: GENERALISED TONIC-CLONIC SEIZURE
     Dosage: UNK
     Route: 042
  2. CLONAZEPAM. [Concomitant]
     Active Substance: CLONAZEPAM
     Indication: STATUS EPILEPTICUS
     Dosage: 1 MG, BID
     Route: 065
  3. CLONAZEPAM. [Concomitant]
     Active Substance: CLONAZEPAM
     Indication: GENERALISED TONIC-CLONIC SEIZURE
     Dosage: 750 MG, TID
     Route: 065
  4. APO-VALPROIC [Interacting]
     Active Substance: VALPROIC ACID
     Indication: GENERALISED TONIC-CLONIC SEIZURE
     Dosage: UNK
     Route: 048
  5. LEVETIRACETAM. [Concomitant]
     Active Substance: LEVETIRACETAM
     Indication: GENERALISED TONIC-CLONIC SEIZURE
     Dosage: 1500 MG, BID
     Route: 065
  6. APO-VALPROIC [Suspect]
     Active Substance: VALPROIC ACID
     Indication: STATUS EPILEPTICUS
     Dosage: 750 MG, TID
     Route: 048
  7. PHENYTOIN. [Concomitant]
     Active Substance: PHENYTOIN
     Indication: STATUS EPILEPTICUS
     Dosage: UNK
     Route: 040
  8. APO-TOPIRAMATE [Interacting]
     Active Substance: TOPIRAMATE
     Indication: GENERALISED TONIC-CLONIC SEIZURE
     Dosage: 200 MG, BID
     Route: 065

REACTIONS (7)
  - Toxic encephalopathy [Recovered/Resolved]
  - Pneumonia aspiration [Recovered/Resolved]
  - Drug interaction [Recovering/Resolving]
  - Encephalopathy [Recovering/Resolving]
  - Hyperammonaemia [Recovered/Resolved]
  - Pneumonia [Recovered/Resolved]
  - Generalised tonic-clonic seizure [Recovered/Resolved]
